FAERS Safety Report 7060103-2 (Version None)
Quarter: 2010Q4

REPORT INFORMATION
  Report Type: 
  Country: None (occurrence: None)
  Receive Date: 20101025
  Receipt Date: 20101015
  Transmission Date: 20110411
  Serious: Yes (Other)
  Sender: FDA-Public Use
  Company Number: GXKR2010NL11725

PATIENT
  Age: 28 Year
  Sex: Male

DRUGS (4)
  1. AMITRIPTYLINE (NGX) [Suspect]
     Indication: NEURALGIA
     Route: 065
  2. METOPROLOL TARTRATE [Suspect]
     Indication: SINUS TACHYCARDIA
     Route: 065
  3. VANCOMYCIN [Concomitant]
     Indication: STAPHYLOCOCCAL INFECTION
     Route: 065
  4. FLUCLOXACILLIN [Concomitant]
     Indication: STAPHYLOCOCCAL INFECTION
     Route: 065

REACTIONS (8)
  - ACUTE LUNG INJURY [None]
  - DIARRHOEA [None]
  - DRUG RASH WITH EOSINOPHILIA AND SYSTEMIC SYMPTOMS [None]
  - GENERALISED OEDEMA [None]
  - HEPATITIS [None]
  - PYREXIA [None]
  - RENAL FAILURE [None]
  - SHOCK [None]
